FAERS Safety Report 12397955 (Version 1)
Quarter: 2016Q2

REPORT INFORMATION
  Report Type: Spontaneous
  Country: US (occurrence: None)
  Receive Date: 20160523
  Receipt Date: 20160523
  Transmission Date: 20160815
  Serious: No
  Sender: FDA-Public Use
  Company Number: None

PATIENT
  Age: 30 Year
  Sex: Female

DRUGS (2)
  1. PROCHLORPERAZINE. [Suspect]
     Active Substance: PROCHLORPERAZINE
     Indication: NAUSEA
     Route: 042
     Dates: start: 20160322, end: 20160322
  2. DEXTROSE. [Concomitant]
     Active Substance: DEXTROSE

REACTIONS (6)
  - Urinary incontinence [None]
  - Anal incontinence [None]
  - Feeling abnormal [None]
  - Retching [None]
  - Abnormal behaviour [None]
  - Restlessness [None]

NARRATIVE: CASE EVENT DATE: 20160322
